FAERS Safety Report 7372718 (Version 6)
Quarter: 2015Q3

REPORT INFORMATION
  Report Type: Spontaneous
  Country: US (occurrence: US)
  Receive Date: 20100430
  Receipt Date: 20150803
  Transmission Date: 20151125
  Serious: No
  Sender: FDA-Public Use
  Company Number: US-ASTRAZENECA-2010SE08447

PATIENT
  Age: 924 Month
  Sex: Female

DRUGS (13)
  1. AMLODIPINE BESYLATE. [Concomitant]
     Active Substance: AMLODIPINE BESYLATE
     Dosage: 10 MG, EVERY MORNING
  2. BABY ASPIRIN [Concomitant]
     Active Substance: ASPIRIN
     Dosage: 81 MG , EVERY MORNING
  3. NEXIUM [Suspect]
     Active Substance: ESOMEPRAZOLE MAGNESIUM
     Route: 048
  4. PRILOSEC [Suspect]
     Active Substance: OMEPRAZOLE MAGNESIUM
     Dosage: DOSE UNKNOWN, FREQUENCY UNKNOWN
     Route: 048
  5. TREVITA [Concomitant]
  6. ATENOLOL. [Suspect]
     Active Substance: ATENOLOL
     Dosage: DOSE UNKNOWN , FREQUENCY UNKNOWN.
     Route: 048
  7. LOSARTAN AND HYDROCHLOROTHIAZIDE [Concomitant]
     Active Substance: HYDROCHLOROTHIAZIDE\LOSARTAN POTASSIUM
     Dosage: 100-12.5 MG, EVERY MORNING
  8. MELOXLCAM [Concomitant]
     Dosage: 7.5MG, EVERY MORNING
  9. VIT B12 AND VITAMIN D [Concomitant]
     Dosage: EVERY MORNING
  10. TRADEJENTA [Concomitant]
     Dosage: 5 MG, EVRY MORNING
  11. METOPROLOL [Concomitant]
     Active Substance: METOPROLOL
     Dosage: 50MG, EVERY MORNING
  12. POLY IRON [Concomitant]
     Active Substance: DIETARY SUPPLEMENT
     Dosage: 150 MG AS REQUIRED
  13. CIPRODEX [Concomitant]
     Active Substance: CIPROFLOXACIN HYDROCHLORIDE\DEXAMETHASONE

REACTIONS (15)
  - Abdominal pain upper [Not Recovered/Not Resolved]
  - Malaise [Unknown]
  - Nausea [Unknown]
  - Dyspepsia [Not Recovered/Not Resolved]
  - Asthenia [Unknown]
  - Dizziness [Unknown]
  - Drug dose omission [Unknown]
  - Hyperchlorhydria [Unknown]
  - Diabetes mellitus [Unknown]
  - Vomiting [Not Recovered/Not Resolved]
  - Amnesia [Unknown]
  - Drug hypersensitivity [Not Recovered/Not Resolved]
  - Drug ineffective [Unknown]
  - Renal disorder [Unknown]
  - Diarrhoea [Not Recovered/Not Resolved]

NARRATIVE: CASE EVENT DATE: 201503
